FAERS Safety Report 9867122 (Version 1)
Quarter: 2014Q1

REPORT INFORMATION
  Report Type: Spontaneous
  Country: US (occurrence: None)
  Receive Date: 20140203
  Receipt Date: 20140203
  Transmission Date: 20141002
  Serious: Yes (Disabling)
  Sender: FDA-Public Use
  Company Number: None

PATIENT
  Age: 62 Year
  Sex: Male
  Weight: 88.45 kg

DRUGS (10)
  1. QUINAPRIL [Suspect]
     Indication: HYPERTENSION
     Route: 048
  2. HCTZ [Concomitant]
  3. QUINAPRIL [Concomitant]
  4. NORVASC [Concomitant]
  5. METROPOLOL [Concomitant]
  6. SYNTHROID [Concomitant]
  7. SIMVASTATIN [Concomitant]
  8. VITAMIN E [Concomitant]
  9. VITAMIN D [Concomitant]
  10. ASPIRIN [Concomitant]

REACTIONS (2)
  - Blood pressure increased [None]
  - Product substitution issue [None]
